FAERS Safety Report 22036321 (Version 1)
Quarter: 2023Q1

REPORT INFORMATION
  Report Type: Spontaneous
  Country: US (occurrence: US)
  Receive Date: 20230225
  Receipt Date: 20230225
  Transmission Date: 20230418
  Serious: No
  Sender: FDA-Public Use
  Company Number: US-SANOFI-01503086

PATIENT
  Age: 21 Year

DRUGS (1)
  1. DUPIXENT [Suspect]
     Active Substance: DUPILUMAB
     Dosage: 300 MG
     Dates: start: 202301

REACTIONS (2)
  - Injection site reaction [Unknown]
  - Rash [Unknown]

NARRATIVE: CASE EVENT DATE: 20230101
